FAERS Safety Report 17253262 (Version 1)
Quarter: 2020Q1

REPORT INFORMATION
  Report Type: Spontaneous
  Country: US (occurrence: US)
  Receive Date: 20200109
  Receipt Date: 20200109
  Transmission Date: 20200409
  Serious: No
  Sender: FDA-Public Use
  Company Number: US-SA-2020SA004677

PATIENT
  Sex: Female

DRUGS (1)
  1. LANTUS SOLOSTAR [Suspect]
     Active Substance: INSULIN GLARGINE
     Dosage: AVERAGING 25 UNITS,  SOMETIMES TAKES UP TO 40 UNITS
     Route: 065
     Dates: start: 2019

REACTIONS (4)
  - Device operational issue [Unknown]
  - Injury associated with device [Unknown]
  - Wrong technique in device usage process [Unknown]
  - Injection site discolouration [Unknown]
